FAERS Safety Report 11258167 (Version 1)
Quarter: 2015Q3

REPORT INFORMATION
  Report Type: Report from Study
  Country: TR (occurrence: TR)
  Receive Date: 20150710
  Receipt Date: 20150710
  Transmission Date: 20151125
  Serious: Yes (Other)
  Sender: FDA-Public Use
  Company Number: TR-EMD SERONO-8032798

PATIENT
  Age: 15 Year
  Sex: Male

DRUGS (1)
  1. SAIZEN [Suspect]
     Active Substance: SOMATROPIN
     Indication: GROWTH HORMONE DEFICIENCY

REACTIONS (4)
  - Nail disorder [Not Recovered/Not Resolved]
  - Lagophthalmos [Recovering/Resolving]
  - Deafness unilateral [Recovering/Resolving]
  - VIIth nerve paralysis [Recovering/Resolving]

NARRATIVE: CASE EVENT DATE: 201502
